FAERS Safety Report 13588963 (Version 3)
Quarter: 2017Q3

REPORT INFORMATION
  Report Type: Spontaneous
  Country: CA (occurrence: CA)
  Receive Date: 20170529
  Receipt Date: 20170904
  Transmission Date: 20171127
  Serious: Yes (Hospitalization, Other)
  Sender: FDA-Public Use
  Company Number: CA-ROCHE-1937352

PATIENT
  Age: 26 Year
  Sex: Female

DRUGS (8)
  1. PLAQUENIL [Suspect]
     Active Substance: HYDROXYCHLOROQUINE SULFATE
     Indication: PRODUCT USED FOR UNKNOWN INDICATION
     Route: 065
     Dates: start: 2001
  2. COLCHICINE. [Concomitant]
     Active Substance: COLCHICINE
     Route: 065
     Dates: start: 20170406
  3. PREDNISONE. [Concomitant]
     Active Substance: PREDNISONE
     Dosage: 5-20 MG
     Route: 065
     Dates: start: 2001, end: 200802
  4. BABY ASPIRIN [Concomitant]
     Active Substance: ASPIRIN
     Route: 065
     Dates: start: 201503
  5. CELLCEPT [Suspect]
     Active Substance: MYCOPHENOLATE MOFETIL\MYCOPHENOLATE MOFETIL HYDROCHLORIDE
     Indication: SYSTEMIC LUPUS ERYTHEMATOSUS
     Route: 048
     Dates: start: 200202
  6. PREDNISONE. [Concomitant]
     Active Substance: PREDNISONE
     Dosage: 15-50 MG?CURRENTLY ON 50 MG. SINCE 15/MAR/2017 50 MG PER DAY FOR 4 WEEKS THEN SLOW TAPER
     Route: 065
     Dates: start: 201306
  7. AZATHIOPRINE. [Suspect]
     Active Substance: AZATHIOPRINE
     Indication: PRODUCT USED FOR UNKNOWN INDICATION
     Route: 065
     Dates: start: 2001, end: 200202
  8. NAPROXEN. [Concomitant]
     Active Substance: NAPROXEN
     Route: 065
     Dates: start: 201611

REACTIONS (17)
  - Dyspnoea [Recovering/Resolving]
  - Asthenia [Recovering/Resolving]
  - Chest discomfort [Recovering/Resolving]
  - Pleuritic pain [Not Recovered/Not Resolved]
  - Aortic valve incompetence [Unknown]
  - Drug ineffective [Unknown]
  - Heart rate increased [Recovering/Resolving]
  - Vasculitis [Unknown]
  - Nephritis [Unknown]
  - Nausea [Recovering/Resolving]
  - Myocarditis [Unknown]
  - Hyperhidrosis [Recovering/Resolving]
  - Aortic valve incompetence [Not Recovered/Not Resolved]
  - Left ventricular dilatation [Unknown]
  - Systemic lupus erythematosus [Unknown]
  - Treatment failure [Unknown]
  - Headache [Recovering/Resolving]

NARRATIVE: CASE EVENT DATE: 201702
